FAERS Safety Report 4443927-7 (Version None)
Quarter: 2004Q3

REPORT INFORMATION
  Report Type: 
  Country: None (occurrence: None)
  Receive Date: 20040729
  Receipt Date: 20040308
  Transmission Date: 20050211
  Serious: Yes (Hospitalization, Disabling)
  Sender: FDA-Public Use
  Company Number: NSADSS2003002707

PATIENT
  Age: 21 Year
  Sex: Male

DRUGS (7)
  1. RISPERDAL [Suspect]
     Indication: SCHIZOPHRENIA
     Dosage: 6 MG, ORAL; 1 MG, ORAL; 1MG WITH TAPER INCREASES 1MG PER WEEK; 4 MG, ORAL
     Route: 048
     Dates: start: 19981001, end: 19981008
  2. RISPERDAL [Suspect]
     Indication: SCHIZOPHRENIA
     Dosage: 6 MG, ORAL; 1 MG, ORAL; 1MG WITH TAPER INCREASES 1MG PER WEEK; 4 MG, ORAL
     Route: 048
     Dates: start: 20010301
  3. RISPERDAL [Suspect]
     Indication: SCHIZOPHRENIA
     Dosage: 6 MG, ORAL; 1 MG, ORAL; 1MG WITH TAPER INCREASES 1MG PER WEEK; 4 MG, ORAL
     Route: 048
     Dates: start: 20010501
  4. RISPERDAL [Suspect]
     Indication: SCHIZOPHRENIA
     Dosage: 6 MG, ORAL; 1 MG, ORAL; 1MG WITH TAPER INCREASES 1MG PER WEEK; 4 MG, ORAL
     Route: 048
     Dates: start: 20011101
  5. CELEXA [Concomitant]
  6. CLOZARIL [Concomitant]
  7. THIOTHIXENE [Concomitant]

REACTIONS (8)
  - ANXIETY [None]
  - CONSTIPATION [None]
  - DEPRESSION [None]
  - DYSURIA [None]
  - FATIGUE [None]
  - MUSCLE FATIGUE [None]
  - SUICIDAL IDEATION [None]
  - SUICIDE ATTEMPT [None]
